FAERS Safety Report 6095841-1 (Version None)
Quarter: 2009Q1

REPORT INFORMATION
  Report Type: 
  Country: None (occurrence: None)
  Receive Date: 20090227
  Receipt Date: 20080625
  Transmission Date: 20090719
  Serious: No
  Sender: FDA-Public Use
  Company Number: A0734762A

PATIENT
  Age: 62 Year
  Sex: Male

DRUGS (3)
  1. LAMICTAL [Suspect]
     Indication: BIPOLAR II DISORDER
     Dosage: 25MG PER DAY
     Route: 048
     Dates: start: 20080609
  2. VICODIN [Concomitant]
  3. ATIVAN [Concomitant]

REACTIONS (4)
  - ILL-DEFINED DISORDER [None]
  - MALAISE [None]
  - MENTAL IMPAIRMENT [None]
  - SINUSITIS [None]
